FAERS Safety Report 9424627 (Version 1)
Quarter: 2013Q3

REPORT INFORMATION
  Report Type: Spontaneous
  Country: TR (occurrence: TR)
  Receive Date: 20130729
  Receipt Date: 20130729
  Transmission Date: 20140515
  Serious: Yes (Other)
  Sender: FDA-Public Use
  Company Number: TR-JNJFOC-20130710495

PATIENT
  Age: 53 Year
  Sex: Female

DRUGS (2)
  1. FENTANYL [Suspect]
     Indication: MUCOSAL INFLAMMATION
     Route: 062
  2. MELPHALAN [Suspect]
     Indication: PLASMA CELL MYELOMA
     Route: 065

REACTIONS (1)
  - Delirium [Not Recovered/Not Resolved]
